FAERS Safety Report 7066146-7 (Version None)
Quarter: 2010Q4

REPORT INFORMATION
  Report Type: 
  Country: None (occurrence: None)
  Receive Date: 20101027
  Receipt Date: 20100618
  Transmission Date: 20110411
  Serious: Yes (Other)
  Sender: FDA-Public Use
  Company Number: HQWYE588525AUG04

PATIENT
  Sex: Female
  Weight: 77.18 kg

DRUGS (6)
  1. PREMPRO [Suspect]
     Indication: HORMONE REPLACEMENT THERAPY
     Dosage: UNKNOWN
     Route: 048
     Dates: start: 19940101, end: 20000101
  2. MEDROXYPROGESTERONE ACETATE [Suspect]
  3. ESTRATEST [Suspect]
     Indication: HOT FLUSH
     Dosage: UNKNOWN
     Route: 048
     Dates: start: 19950101, end: 20000101
  4. PROGESTERONE [Suspect]
     Indication: HOT FLUSH
     Dosage: UNKNOWN
     Route: 048
     Dates: start: 19970101, end: 20000101
  5. PREMARIN [Suspect]
     Dosage: UNSPECIFIED
     Route: 048
     Dates: start: 19940101, end: 19990101
  6. PROVERA [Suspect]
     Indication: HOT FLUSH
     Dosage: UNKNOWN
     Route: 048
     Dates: start: 19940101, end: 19950101

REACTIONS (1)
  - BREAST CANCER [None]
